FAERS Safety Report 20939530 (Version 5)
Quarter: 2023Q1

REPORT INFORMATION
  Report Type: Report from Study
  Country: GB (occurrence: GB)
  Receive Date: 20220609
  Receipt Date: 20230118
  Transmission Date: 20230417
  Serious: Yes (Other)
  Sender: FDA-Public Use
  Company Number: CA-BRISTOL-MYERS SQUIBB COMPANY-BMS-2019-093401

PATIENT
  Age: 53 Year
  Sex: Female

DRUGS (3)
  1. METHOTREXATE SODIUM [Suspect]
     Active Substance: METHOTREXATE SODIUM
     Indication: Product used for unknown indication
     Dosage: UNK
     Route: 065
  2. ABATACEPT [Suspect]
     Active Substance: ABATACEPT
     Indication: Rheumatoid arthritis
     Dosage: 125 MILLIGRAM, QWK, EW, DELIVERY START DATE: 16NOV2020, 4 PRE-FILLED DISPOSABLE INJECTION
     Route: 058
     Dates: end: 202011
  3. ABATACEPT [Suspect]
     Active Substance: ABATACEPT
     Dosage: 125 MG, WEEKLY
     Route: 058

REACTIONS (8)
  - Gastrooesophageal reflux disease [Unknown]
  - Infection [Not Recovered/Not Resolved]
  - Lower respiratory tract infection [Unknown]
  - Malaise [Unknown]
  - Hypotension [Unknown]
  - Cough [Recovered/Resolved]
  - Rheumatoid arthritis [Unknown]
  - Localised infection [Unknown]

NARRATIVE: CASE EVENT DATE: 20200223
